FAERS Safety Report 20558539 (Version 1)
Quarter: 2022Q1

REPORT INFORMATION
  Report Type: Spontaneous
  Country: US (occurrence: US)
  Receive Date: 20220307
  Receipt Date: 20220307
  Transmission Date: 20220424
  Serious: No
  Sender: FDA-Public Use
  Company Number: US-SA-SAC20220302000572

PATIENT
  Sex: Female

DRUGS (5)
  1. DUPIXENT [Suspect]
     Active Substance: DUPILUMAB
     Dosage: 300 MG, QOW
     Route: 058
     Dates: start: 20210928
  2. ABILIFY [Concomitant]
     Active Substance: ARIPIPRAZOLE
  3. LAMOTRIGINE [Concomitant]
     Active Substance: LAMOTRIGINE
  4. OLANZAPINE [Concomitant]
     Active Substance: OLANZAPINE
  5. SERTRALINE [Concomitant]
     Active Substance: SERTRALINE HYDROCHLORIDE

REACTIONS (1)
  - Impaired quality of life [Unknown]
